FAERS Safety Report 14702867 (Version 2)
Quarter: 2018Q2

REPORT INFORMATION
  Report Type: Spontaneous
  Country: IT (occurrence: IT)
  Receive Date: 20180402
  Receipt Date: 20180604
  Transmission Date: 20180711
  Serious: Yes (Other)
  Sender: FDA-Public Use
  Company Number: IT-ROCHE-2092874

PATIENT
  Age: 55 Year
  Sex: Female

DRUGS (4)
  1. COPEGUS [Suspect]
     Active Substance: RIBAVIRIN
     Indication: PRODUCT USED FOR UNKNOWN INDICATION
     Route: 048
     Dates: start: 20151217, end: 20160129
  2. KONAKION [Concomitant]
     Active Substance: PHYTONADIONE
     Route: 065
     Dates: start: 20151217, end: 20160607
  3. SOVALDI [Suspect]
     Active Substance: SOFOSBUVIR
     Indication: PRODUCT USED FOR UNKNOWN INDICATION
     Route: 048
     Dates: start: 20151217, end: 20160607
  4. DAKLINZA [Concomitant]
     Active Substance: DACLATASVIR
     Route: 048
     Dates: start: 20151217, end: 20160607

REACTIONS (3)
  - Face oedema [Unknown]
  - Oedema peripheral [Unknown]
  - Laryngeal oedema [Unknown]

NARRATIVE: CASE EVENT DATE: 20160129
